FAERS Safety Report 20214326 (Version 3)
Quarter: 2021Q4

REPORT INFORMATION
  Report Type: Spontaneous
  Country: AU (occurrence: AU)
  Receive Date: 20211221
  Receipt Date: 20211231
  Transmission Date: 20220303
  Serious: Yes (Other)
  Sender: FDA-Public Use
  Company Number: AU-ALLERGAN-2143434US

PATIENT
  Sex: Male

DRUGS (2)
  1. SILODOSIN [Suspect]
     Active Substance: SILODOSIN
     Indication: Benign prostatic hyperplasia
     Dosage: UNK
     Dates: start: 202002, end: 202003
  2. SILODOSIN [Suspect]
     Active Substance: SILODOSIN
     Indication: Lower urinary tract symptoms

REACTIONS (1)
  - Erectile dysfunction [Unknown]
